FAERS Safety Report 9191516 (Version 1)
Quarter: 2013Q1

REPORT INFORMATION
  Report Type: Spontaneous
  Country: US (occurrence: US)
  Receive Date: 20130326
  Receipt Date: 20130326
  Transmission Date: 20140127
  Serious: No
  Sender: FDA-Public Use
  Company Number: US-009507513-1303USA012649

PATIENT
  Sex: Male

DRUGS (2)
  1. MIRALAX [Suspect]
     Indication: CONSTIPATION
     Dosage: 51 G, ONCE
     Route: 048
     Dates: start: 20130216
  2. MIRALAX [Suspect]
     Indication: PAIN

REACTIONS (2)
  - Diarrhoea [Not Recovered/Not Resolved]
  - Overdose [Unknown]
